FAERS Safety Report 10068555 (Version 2)
Quarter: 2014Q2

REPORT INFORMATION
  Report Type: Report from Study
  Country: CA (occurrence: CA)
  Receive Date: 20140409
  Receipt Date: 20140429
  Transmission Date: 20141212
  Serious: Yes (Hospitalization)
  Sender: FDA-Public Use
  Company Number: CA-JNJFOC-20140403428

PATIENT
  Sex: Female
  Weight: 52.16 kg

DRUGS (7)
  1. REMICADE [Suspect]
     Indication: CROHN^S DISEASE
     Route: 042
  2. REMICADE [Suspect]
     Indication: CROHN^S DISEASE
     Dosage: 49TH INFUSION
     Route: 042
     Dates: start: 20140402
  3. REMICADE [Suspect]
     Indication: CROHN^S DISEASE
     Route: 042
     Dates: start: 20060701
  4. WELLBUTRIN [Concomitant]
     Route: 065
  5. ALESSE [Concomitant]
     Route: 065
  6. ZOPICLONE [Concomitant]
     Route: 065
  7. CIPRALEX [Concomitant]
     Route: 065

REACTIONS (1)
  - Intestinal stenosis [Recovering/Resolving]
